FAERS Safety Report 19808500 (Version 1)
Quarter: 2021Q3

REPORT INFORMATION
  Report Type: Spontaneous
  Country: CN (occurrence: CN)
  Receive Date: 20210908
  Receipt Date: 20210908
  Transmission Date: 20211014
  Serious: Yes (Life-Threatening)
  Sender: FDA-Public Use
  Company Number: CN-EISAI MEDICAL RESEARCH-EC-2021-099211

PATIENT
  Age: 33 Year
  Sex: Male
  Weight: 65 kg

DRUGS (4)
  1. BISMUTH POTASSIUM CITRATE [Concomitant]
     Active Substance: BISMUTH SUBCITRATE
     Indication: ANTACID THERAPY
     Route: 048
     Dates: start: 20210827, end: 20210830
  2. RABEPRAZOLE [Suspect]
     Active Substance: RABEPRAZOLE
     Indication: ANTACID THERAPY
     Route: 048
     Dates: start: 20210827, end: 20210827
  3. TINIDAZOLE. [Concomitant]
     Active Substance: TINIDAZOLE
     Indication: HELICOBACTER INFECTION
     Route: 048
     Dates: start: 20210827, end: 20210830
  4. CLARITHROMYCIN. [Concomitant]
     Active Substance: CLARITHROMYCIN
     Indication: HELICOBACTER INFECTION
     Route: 048
     Dates: start: 20210827, end: 20210830

REACTIONS (3)
  - Dizziness [Recovered/Resolved]
  - Chest discomfort [Recovered/Resolved]
  - Syncope [Recovered/Resolved]

NARRATIVE: CASE EVENT DATE: 20210827
